FAERS Safety Report 7481757-2 (Version None)
Quarter: 2011Q2

REPORT INFORMATION
  Report Type: 
  Country: None (occurrence: None)
  Receive Date: 20110516
  Receipt Date: 20110506
  Transmission Date: 20111010
  Serious: Yes (Hospitalization)
  Sender: FDA-Public Use
  Company Number: B0717629A

PATIENT
  Sex: Male

DRUGS (10)
  1. TEGRETOL [Suspect]
     Dosage: 600MG PER DAY
     Route: 048
     Dates: end: 20100916
  2. HALDOL [Concomitant]
     Route: 065
  3. DIET MEDICATION [Concomitant]
     Route: 065
  4. PARKINANE [Concomitant]
     Route: 065
  5. KEPPRA [Concomitant]
     Route: 065
     Dates: start: 20090101
  6. FOLIC ACID [Concomitant]
     Route: 065
     Dates: start: 20050101
  7. PAROXETINE HCL [Suspect]
     Dosage: .5UNIT PER DAY
     Route: 048
     Dates: start: 20020101, end: 20100925
  8. TERCIAN [Concomitant]
     Route: 065
  9. ANTIHYPERTENSIVE (UNSPECIFIED) [Concomitant]
  10. FENOFIBRATE [Suspect]
     Dosage: 160MG PER DAY
     Route: 048
     Dates: start: 20060401, end: 20090910

REACTIONS (18)
  - GENERALISED OEDEMA [None]
  - ACUTE PULMONARY OEDEMA [None]
  - VITAMIN K DEFICIENCY [None]
  - VENOUS THROMBOSIS LIMB [None]
  - PULMONARY ALVEOLAR HAEMORRHAGE [None]
  - CARDIAC FAILURE [None]
  - OXYGEN SATURATION DECREASED [None]
  - HYPOGAMMAGLOBULINAEMIA [None]
  - TRANSFERRIN DECREASED [None]
  - BLOOD FOLLICLE STIMULATING HORMONE INCREASED [None]
  - THROMBOCYTOPENIA [None]
  - BLOOD LUTEINISING HORMONE INCREASED [None]
  - WEIGHT INCREASED [None]
  - BLOOD IRON DECREASED [None]
  - HYPERPROLACTINAEMIA [None]
  - BLOOD PRESSURE INADEQUATELY CONTROLLED [None]
  - DYSPNOEA [None]
  - HYPOALBUMINAEMIA [None]
